FAERS Safety Report 23587139 (Version 9)
Quarter: 2025Q4

REPORT INFORMATION
  Report Type: Spontaneous
  Country: US (occurrence: US)
  Receive Date: 20240301
  Receipt Date: 20251030
  Transmission Date: 20260117
  Serious: Yes (Other)
  Sender: KARYOPHARM THERAPEUTICS
  Company Number: US-KARYOPHARM-2024KPT000616

PATIENT

DRUGS (15)
  1. XPOVIO [Suspect]
     Active Substance: SELINEXOR
     Indication: Plasma cell myeloma
     Dosage: 40 MG WEEKLY
     Route: 048
     Dates: start: 20221101
  2. XPOVIO [Suspect]
     Active Substance: SELINEXOR
     Dosage: 40 MG WEEKLY
     Route: 048
     Dates: start: 202405
  3. XPOVIO [Suspect]
     Active Substance: SELINEXOR
     Dosage: 40 MG EVERY TWO WEEKS
     Route: 048
     Dates: start: 2024, end: 2024
  4. XPOVIO [Suspect]
     Active Substance: SELINEXOR
     Dosage: 20 MG WEEKLY
     Route: 048
  5. XPOVIO [Suspect]
     Active Substance: SELINEXOR
     Dosage: 40 MG EVERY 14 DAYS
     Route: 048
  6. ACYCLOVIR [Concomitant]
     Active Substance: ACYCLOVIR
  7. ATORVASTATIN [Concomitant]
     Active Substance: ATORVASTATIN
  8. ASPIRIN [Concomitant]
     Active Substance: ASPIRIN
  9. COMBIGAN D [Concomitant]
  10. DEXAMETHASONE [Concomitant]
     Active Substance: DEXAMETHASONE
  11. KYPROLIS [Concomitant]
     Active Substance: CARFILZOMIB
  12. NEBIVOLOL [Concomitant]
     Active Substance: NEBIVOLOL
  13. LOSARTAN [Concomitant]
     Active Substance: LOSARTAN
  14. ZOLEDRONIC ACID [Concomitant]
     Active Substance: ZOLEDRONIC ACID
  15. ZOFRAN [Concomitant]
     Active Substance: ONDANSETRON HYDROCHLORIDE

REACTIONS (7)
  - Cataract [Not Recovered/Not Resolved]
  - Malaise [Unknown]
  - Feeling cold [Not Recovered/Not Resolved]
  - Chills [Unknown]
  - Decreased appetite [Not Recovered/Not Resolved]
  - Asthenia [Not Recovered/Not Resolved]
  - Fatigue [Unknown]

NARRATIVE: CASE EVENT DATE: 20240201
